FAERS Safety Report 8761533 (Version 4)
Quarter: 2013Q1

REPORT INFORMATION
  Report Type: Spontaneous
  Country: BR (occurrence: BR)
  Receive Date: 20120829
  Receipt Date: 20130313
  Transmission Date: 20140127
  Serious: Yes (Other)
  Sender: FDA-Public Use
  Company Number: BR-AMGEN-BRASP2012054364

PATIENT
  Age: 38 Year
  Sex: Male
  Weight: 72 kg

DRUGS (6)
  1. ENBREL [Suspect]
     Indication: ANKYLOSING SPONDYLITIS
     Dosage: 50 MG, 1X/WEEK
     Route: 058
     Dates: start: 20120715
  2. MELOXICAM [Concomitant]
     Indication: PAIN
     Dosage: UNK
  3. FAMOTIDINE [Concomitant]
     Indication: ABDOMINAL PAIN UPPER
     Dosage: UNK
  4. FAMOTIDINE [Concomitant]
     Indication: ABDOMINAL PAIN UPPER
  5. METHOTREXATE [Concomitant]
     Dosage: 10 G, UNK
  6. FOLIC ACID [Concomitant]
     Dosage: UNK

REACTIONS (4)
  - Weight increased [Unknown]
  - Incorrect storage of drug [Unknown]
  - Back pain [Unknown]
  - Pain [Unknown]
